FAERS Safety Report 9669833 (Version 2)
Quarter: 2014Q1

REPORT INFORMATION
  Report Type: Spontaneous
  Country: JP (occurrence: JP)
  Receive Date: 20131105
  Receipt Date: 20140108
  Transmission Date: 20141002
  Serious: Yes (Hospitalization, Other)
  Sender: FDA-Public Use
  Company Number: JP-ROCHE-1296277

PATIENT
  Age: 71 Year
  Sex: Female
  Weight: 52 kg

DRUGS (9)
  1. HERCEPTIN [Suspect]
     Indication: METASTATIC GASTRIC CANCER
     Route: 041
     Dates: start: 20120516, end: 20120516
  2. XELODA [Suspect]
     Indication: METASTATIC GASTRIC CANCER
     Route: 048
     Dates: start: 20120516
  3. XELODA [Suspect]
     Indication: METASTATIC GASTRIC CANCER
     Route: 048
     Dates: start: 20120703, end: 20120717
  4. XELODA [Suspect]
     Indication: METASTATIC GASTRIC CANCER
     Route: 048
     Dates: start: 20120813, end: 20120820
  5. RANDA [Suspect]
     Indication: METASTATIC GASTRIC CANCER
     Dosage: TRADENAME: RANDA
     Route: 041
     Dates: start: 20120516, end: 20120516
  6. RANDA [Suspect]
     Route: 041
  7. PALONOSETRON HYDROCHLORIDE [Concomitant]
     Indication: PROPHYLAXIS OF NAUSEA AND VOMITING
     Dosage: DOSAGE IS UNCERTAIN.
     Route: 065
     Dates: start: 201205
  8. APREPITANT [Concomitant]
     Indication: PROPHYLAXIS OF NAUSEA AND VOMITING
     Dosage: DOSAGE IS UNCERTAIN.
     Route: 065
     Dates: start: 201205
  9. DEXAMETHASONE [Concomitant]
     Indication: PROPHYLAXIS OF NAUSEA AND VOMITING
     Dosage: DOSAGE IS UNCERTAIN.
     Route: 065
     Dates: start: 201205

REACTIONS (3)
  - Palmar-plantar erythrodysaesthesia syndrome [Recovered/Resolved]
  - Nausea [Recovering/Resolving]
  - Diarrhoea [Recovered/Resolved]
